FAERS Safety Report 19957200 (Version 1)
Quarter: 2021Q4

REPORT INFORMATION
  Report Type: Spontaneous
  Country: DE (occurrence: DE)
  Receive Date: 20211014
  Receipt Date: 20211014
  Transmission Date: 20220304
  Serious: Yes (Hospitalization, Other)
  Sender: FDA-Public Use
  Company Number: DE-TAKEDA-2021TUS063332

PATIENT
  Age: 78 Year
  Sex: Male

DRUGS (1)
  1. MESALAMINE [Suspect]
     Active Substance: MESALAMINE
     Indication: Colitis
     Dosage: 1 GRAM
     Route: 048
     Dates: start: 202006

REACTIONS (2)
  - Pancytopenia [Recovering/Resolving]
  - Mononuclear cell count abnormal [Recovering/Resolving]

NARRATIVE: CASE EVENT DATE: 20200815
